FAERS Safety Report 4667434-1 (Version None)
Quarter: 2005Q2

REPORT INFORMATION
  Report Type: 
  Country: None (occurrence: None)
  Receive Date: 20050520
  Receipt Date: 20050207
  Transmission Date: 20051028
  Serious: Yes (Other)
  Sender: FDA-Public Use
  Company Number: PHEH2005US01808

PATIENT
  Age: 75 Year
  Sex: Male

DRUGS (2)
  1. AREDIA [Suspect]
     Dosage: UNK, UNK
  2. ZOMETA [Suspect]
     Dosage: UNK, UNK

REACTIONS (3)
  - BONE DISORDER [None]
  - OSTEONECROSIS [None]
  - TOOTH EXTRACTION [None]
